FAERS Safety Report 6055296-X (Version None)
Quarter: 2009Q1

REPORT INFORMATION
  Report Type: 
  Country: None (occurrence: None)
  Receive Date: 20090128
  Receipt Date: 20090116
  Transmission Date: 20090719
  Serious: Yes (Other)
  Sender: FDA-Public Use
  Company Number: NL-PFIZER INC-2009157515

PATIENT

DRUGS (6)
  1. PREGABALIN [Suspect]
     Indication: BACK PAIN
     Dosage: 300 MG, 2X/DAY
     Route: 048
     Dates: start: 20051013
  2. PREGABALIN [Suspect]
     Indication: ARTHRALGIA
  3. FENTANYL CITRATE [Suspect]
     Indication: BACK PAIN
     Dosage: 100 MCG/HOUR
     Route: 061
     Dates: start: 20060309
  4. FENTANYL CITRATE [Suspect]
     Indication: ARTHRALGIA
  5. OXYNORM [Suspect]
     Indication: BACK PAIN
     Dosage: 5 MG, 2X/DAY
     Route: 048
     Dates: start: 20060309
  6. OXYNORM [Suspect]
     Indication: ARTHRALGIA

REACTIONS (1)
  - RETINITIS [None]
